FAERS Safety Report 4398490-6 (Version None)
Quarter: 2004Q3

REPORT INFORMATION
  Report Type: 
  Country: None (occurrence: None)
  Receive Date: 20040714
  Receipt Date: 20040714
  Transmission Date: 20050211
  Serious: Yes (Hospitalization)
  Sender: FDA-Public Use
  Company Number: None

PATIENT
  Age: 69 Year
  Sex: Male
  Weight: 56.6996 kg

DRUGS (12)
  1. MORPHINE BUPIVACAINE EPIDURAL (+) PLAIN MORPHINE INJ [Suspect]
     Indication: PAIN
     Dosage: EPIDURAL 8 ML/HR 2-4 MG IV Q H PRN
     Route: 042
     Dates: start: 20040326, end: 20040328
  2. PROMETHAZINE [Suspect]
     Indication: NAUSEA
     Dosage: 25 MG IM/PO Q 4 HR PRN
     Route: 030
     Dates: start: 20040326, end: 20040328
  3. PROMETHAZINE [Suspect]
     Indication: PAIN
     Dosage: 25 MG IM/PO Q 4 HR PRN
     Route: 030
     Dates: start: 20040326, end: 20040328
  4. SOLU-CORTEF [Concomitant]
  5. CIPRO [Concomitant]
  6. PRINIVIL [Concomitant]
  7. NICODERM [Concomitant]
  8. PEPCID [Concomitant]
  9. ATIVAN [Concomitant]
  10. NARCAN [Concomitant]
  11. PHENERGAN [Concomitant]
  12. BENADRYL [Concomitant]

REACTIONS (3)
  - AGITATION [None]
  - CONFUSIONAL STATE [None]
  - HYPERSENSITIVITY [None]
